FAERS Safety Report 13986364 (Version 1)
Quarter: 2017Q3

REPORT INFORMATION
  Report Type: Spontaneous
  Country: US (occurrence: None)
  Receive Date: 20170919
  Receipt Date: 20170919
  Transmission Date: 20171128
  Serious: Yes (Life-Threatening)
  Sender: FDA-Public Use
  Company Number: None

PATIENT
  Age: 75 Year
  Sex: Female
  Weight: 79.38 kg

DRUGS (4)
  1. CRANBERRY. [Concomitant]
     Active Substance: CRANBERRY
  2. DEVIL^S CLAW [Concomitant]
     Active Substance: HERBALS
  3. TELMISARTAN TABLETS 80MG RX ONLY 30 TABLETS (3X10 UNIT DOSE) SANDOZ A NOVARTIS COMPANY. FINISHED DRUG PRODUCT MANUFACTURED BY LEK PHARMACEUTICALS D.D. SI-1526 LJUBLJANA, SLOVENIA PRODUCT OF CHINA [Suspect]
     Active Substance: TELMISARTAN
     Indication: HYPERTENSION
     Dosage: 80MG 30 TABLETS (3X10 UNIT DOSE) ONCE DAILY BY MOUTH
     Route: 048
     Dates: start: 20170720, end: 20170906
  4. TUMERIC/CURCUMIN [Concomitant]

REACTIONS (1)
  - Drug ineffective [None]

NARRATIVE: CASE EVENT DATE: 20170905
